FAERS Safety Report 5680250-7 (Version None)
Quarter: 2008Q1

REPORT INFORMATION
  Report Type: 
  Country: None (occurrence: None)
  Receive Date: 20080326
  Receipt Date: 20080313
  Transmission Date: 20080703
  Serious: Yes (Other)
  Sender: FDA-Public Use
  Company Number: PHHY2008JP02939

PATIENT
  Age: 11 Year
  Sex: Female

DRUGS (4)
  1. CYCLOSPORINE [Suspect]
     Indication: TAKAYASU'S ARTERITIS
  2. PREDNISOLONE [Concomitant]
     Indication: TAKAYASU'S ARTERITIS
     Dosage: 15 MG/DAY
  3. PREDNISOLONE [Concomitant]
     Dosage: 20 MG/DAY
  4. ENDOXAN [Concomitant]

REACTIONS (5)
  - BLOOD PRESSURE ABNORMAL [None]
  - C-REACTIVE PROTEIN INCREASED [None]
  - HYPOAESTHESIA [None]
  - PERIPHERAL COLDNESS [None]
  - SUBCLAVIAN ARTERY STENOSIS [None]
